FAERS Safety Report 16184084 (Version 1)
Quarter: 2019Q2

REPORT INFORMATION
  Report Type: Spontaneous
  Country: US (occurrence: US)
  Receive Date: 20190307
  Receipt Date: 20190307
  Transmission Date: 20190711
  Serious: Yes (Hospitalization)
  Sender: FDA-Public Use
  Company Number: None

PATIENT
  Age: 66 Year
  Sex: Male
  Weight: 101 kg

DRUGS (1)
  1. CISPLATIN. [Suspect]
     Active Substance: CISPLATIN
     Dates: start: 20190219

REACTIONS (5)
  - Nausea [None]
  - Abdominal discomfort [None]
  - Dysphagia [None]
  - Dysgeusia [None]
  - Oropharyngeal pain [None]

NARRATIVE: CASE EVENT DATE: 20190223
